FAERS Safety Report 25288084 (Version 1)
Quarter: 2025Q2

REPORT INFORMATION
  Report Type: Spontaneous
  Country: SE (occurrence: SE)
  Receive Date: 20250509
  Receipt Date: 20250509
  Transmission Date: 20250716
  Serious: Yes (Other)
  Sender: AZURITY PHARMACEUTICALS
  Company Number: SE-AZURITY PHARMACEUTICALS, INC.-AZR202504-001258

PATIENT
  Age: 54 Year
  Sex: Female
  Weight: 68 kg

DRUGS (2)
  1. IVERMECTIN [Suspect]
     Active Substance: IVERMECTIN
     Indication: Acarodermatitis
     Route: 065
  2. IVERMECTIN [Suspect]
     Active Substance: IVERMECTIN
     Route: 065

REACTIONS (6)
  - Seizure [Unknown]
  - Swelling [Unknown]
  - Nausea [Unknown]
  - Headache [Unknown]
  - Heart rate increased [Unknown]
  - Confusional state [Unknown]
